FAERS Safety Report 22639742 (Version 1)
Quarter: 2023Q2

REPORT INFORMATION
  Report Type: Spontaneous
  Country: ES (occurrence: ES)
  Receive Date: 20230626
  Receipt Date: 20230626
  Transmission Date: 20230721
  Serious: Yes (Hospitalization, Other)
  Sender: FDA-Public Use
  Company Number: None

PATIENT
  Age: 34 Year
  Sex: Male

DRUGS (5)
  1. ACETAMINOPHEN [Interacting]
     Active Substance: ACETAMINOPHEN
     Indication: Product used for unknown indication
     Dosage: 20 GRAM, 1 TOTAL
     Route: 048
     Dates: start: 20230603, end: 20230603
  2. OMEPRAZOLE [Interacting]
     Active Substance: OMEPRAZOLE
     Indication: Product used for unknown indication
     Dosage: UNK (2 BLISTER)
     Route: 048
     Dates: start: 20230603, end: 20230603
  3. ALMAGATE [Interacting]
     Active Substance: ALMAGATE
     Indication: Product used for unknown indication
     Dosage: UNK (1 BLISTER)
     Route: 048
     Dates: start: 20230603, end: 20230603
  4. JANUMET [Interacting]
     Active Substance: METFORMIN HYDROCHLORIDE\SITAGLIPTIN PHOSPHATE
     Indication: Product used for unknown indication
     Dosage: 40 DOSAGE FORM, 1 TOTAL
     Route: 048
     Dates: start: 20230603, end: 20230603
  5. AMOXICILLIN [Interacting]
     Active Substance: AMOXICILLIN
     Indication: Product used for unknown indication
     Dosage: UNK (4 BLISTER)
     Route: 048
     Dates: start: 20230603, end: 20230603

REACTIONS (4)
  - Hyperlactacidaemia [Recovered/Resolved]
  - Acute kidney injury [Recovered/Resolved]
  - Suicide attempt [Unknown]
  - Drug interaction [Unknown]

NARRATIVE: CASE EVENT DATE: 20230603
